FAERS Safety Report 21345353 (Version 1)
Quarter: 2022Q3

REPORT INFORMATION
  Report Type: Spontaneous
  Country: US (occurrence: US)
  Receive Date: 20220916
  Receipt Date: 20220916
  Transmission Date: 20221026
  Serious: No
  Sender: FDA-Public Use
  Company Number: US-REGENERON PHARMACEUTICALS, INC.-2022-18368

PATIENT
  Sex: Female

DRUGS (4)
  1. PRALUENT [Suspect]
     Active Substance: ALIROCUMAB
     Indication: Hypercholesterolaemia
     Dosage: 75 MG, Q2W
     Route: 058
     Dates: start: 20211201, end: 20211215
  2. PROGRAF [Concomitant]
     Active Substance: TACROLIMUS
     Indication: Transplant rejection
     Dosage: UNK
     Route: 065
  3. PREDNISONE [Concomitant]
     Active Substance: PREDNISONE
     Indication: Transplant rejection
     Dosage: UNK
     Route: 065
  4. MAGNESIUM [Concomitant]
     Active Substance: MAGNESIUM
     Indication: Product used for unknown indication
     Dosage: 400 MG, DAILY
     Route: 065

REACTIONS (6)
  - Dyspnoea [Not Recovered/Not Resolved]
  - Malaise [Unknown]
  - Bone pain [Not Recovered/Not Resolved]
  - Chest discomfort [Recovering/Resolving]
  - Blood creatinine increased [Recovered/Resolved]
  - Haematocrit decreased [Unknown]

NARRATIVE: CASE EVENT DATE: 20211201
